FAERS Safety Report 6740107-7 (Version None)
Quarter: 2010Q2

REPORT INFORMATION
  Report Type: 
  Country: None (occurrence: None)
  Receive Date: 20100525
  Receipt Date: 20100514
  Transmission Date: 20101027
  Serious: Yes (Hospitalization)
  Sender: FDA-Public Use
  Company Number: US-PERRIGO-10US009690

PATIENT
  Sex: Male
  Weight: 19.501 kg

DRUGS (7)
  1. IBUPROFEN CHILD BUBBLEGUM 20 MG/ML 166 [Suspect]
     Indication: PYREXIA
     Dosage: 150 MG, SINGLE
     Route: 048
     Dates: start: 20100514, end: 20100514
  2. IBUPROFEN CHILD BUBBLEGUM 20 MG/ML 166 [Suspect]
     Indication: RHINORRHOEA
  3. IBUPROFEN CHILD BUBBLEGUM 20 MG/ML 166 [Suspect]
     Indication: COUGH
  4. TYLENOL [Suspect]
     Indication: PYREXIA
     Dosage: 1.5 TSP EVERY FOUR HOURS
     Route: 048
     Dates: start: 20100514
  5. LAMICTAL [Concomitant]
     Indication: EPILEPSY
     Dosage: 200 MG IN AM, 175 MG IN PM
     Route: 048
     Dates: start: 20070501
  6. TOPAMAX [Concomitant]
     Indication: EPILEPSY
     Dosage: 100 MG, BID
     Route: 048
     Dates: start: 20070501
  7. BANZEL [Concomitant]
     Indication: EPILEPSY
     Dosage: 50 MG, QD
     Route: 048
     Dates: start: 20100513

REACTIONS (2)
  - DRUG INEFFECTIVE [None]
  - FEBRILE CONVULSION [None]
